FAERS Safety Report 6711763-4 (Version None)
Quarter: 2010Q2

REPORT INFORMATION
  Report Type: 
  Country: None (occurrence: None)
  Receive Date: 20100505
  Receipt Date: 20100428
  Transmission Date: 20101027
  Serious: Yes (Other)
  Sender: FDA-Public Use
  Company Number: B0527488A

PATIENT
  Age: 60 Year
  Sex: Female
  Weight: 68 kg

DRUGS (12)
  1. ROSIGLITAZONE [Suspect]
     Route: 048
     Dates: start: 20070501, end: 20071106
  2. PIOGLITAZONE [Suspect]
     Route: 048
     Dates: start: 20080109
  3. PROCYCLIDINE HYDROCHLORIDE 2MG TAB [Concomitant]
     Dosage: 15MG PER DAY
     Route: 048
  4. ASPIRIN [Concomitant]
     Dosage: 75MG PER DAY
     Route: 048
  5. SIMVASTATIN [Concomitant]
     Dosage: 40MG PER DAY
     Route: 048
  6. METFORMIN HCL [Concomitant]
     Dosage: 2G PER DAY
     Route: 048
     Dates: start: 20010101
  7. GLICLAZIDE [Concomitant]
     Dosage: 80MG PER DAY
     Route: 048
     Dates: start: 20010101
  8. CALCICHEW D3 [Concomitant]
  9. ACETAMINOPHEN AND CODEINE PHOSPHATE [Concomitant]
  10. AMLODIPINE [Concomitant]
  11. MODECATE [Concomitant]
  12. BENDROFLUAZIDE [Concomitant]
     Indication: HYPERTENSION
     Route: 048

REACTIONS (3)
  - FALL [None]
  - FOOT FRACTURE [None]
  - WRIST FRACTURE [None]
